FAERS Safety Report 9177273 (Version 1)
Quarter: 2013Q1

REPORT INFORMATION
  Report Type: Report from Study
  Country: DE (occurrence: DE)
  Receive Date: 20130321
  Receipt Date: 20130321
  Transmission Date: 20140127
  Serious: Yes (Other)
  Sender: FDA-Public Use
  Company Number: DE-ASTELLAS-2013US003045

PATIENT
  Sex: Male

DRUGS (2)
  1. ERLOTINIB TABLET [Suspect]
     Indication: NON-SMALL CELL LUNG CANCER
     Dosage: 150 MG, UID/QD
     Route: 048
     Dates: start: 200612, end: 200701
  2. ERLOTINIB TABLET [Suspect]
     Dosage: 125 MG, UID/QD
     Route: 048
     Dates: start: 200701

REACTIONS (4)
  - Convulsion [Unknown]
  - Malignant neoplasm progression [Unknown]
  - Chest pain [Not Recovered/Not Resolved]
  - Rash [Unknown]
